FAERS Safety Report 4886497-1 (Version None)
Quarter: 2005Q4

REPORT INFORMATION
  Report Type: 
  Country: None (occurrence: None)
  Receive Date: 20051220
  Receipt Date: 20050425
  Transmission Date: 20060501
  Serious: Yes (Other)
  Sender: FDA-Public Use
  Company Number: HQWYE374327APR05

PATIENT
  Age: 53 Year
  Sex: Female
  Weight: 79.45 kg

DRUGS (2)
  1. EFFEXOR XR [Suspect]
     Indication: NIGHT SWEATS
     Dosage: 37.5 MG 2X PER 1 DAY, ORAL
     Route: 048
     Dates: start: 20050405, end: 20050415
  2. THORAZINE [Concomitant]

REACTIONS (4)
  - ANXIETY [None]
  - DYSPNOEA [None]
  - HEART RATE INCREASED [None]
  - WEIGHT DECREASED [None]
